FAERS Safety Report 6276423-5 (Version None)
Quarter: 2009Q3

REPORT INFORMATION
  Report Type: 
  Country: None (occurrence: None)
  Receive Date: 20090717
  Receipt Date: 20090717
  Transmission Date: 20100115
  Serious: No
  Sender: FDA-Public Use
  Company Number: None

PATIENT
  Sex: Female
  Weight: 74.8435 kg

DRUGS (2)
  1. ZICAM COLD REMEDY NASAL GEL [Suspect]
     Indication: NASAL CONGESTION
     Dosage: A SQUEEZE ON Q-TIP TO NOSE EVERY 4 HRS
     Dates: start: 20090201, end: 20090401
  2. ZICAM COLD REMEDY NASAL GEL [Suspect]
     Indication: NASOPHARYNGITIS
     Dosage: A SQUEEZE ON Q-TIP TO NOSE EVERY 4 HRS
     Dates: start: 20090201, end: 20090401

REACTIONS (2)
  - ANOSMIA [None]
  - HYPOGEUSIA [None]
